FAERS Safety Report 18932851 (Version 1)
Quarter: 2021Q1

REPORT INFORMATION
  Report Type: Spontaneous
  Country: US (occurrence: US)
  Receive Date: 20210223
  Receipt Date: 20210223
  Transmission Date: 20210420
  Serious: Yes (Hospitalization)
  Sender: FDA-Public Use
  Company Number: None

PATIENT
  Age: 75 Year
  Sex: Male
  Weight: 68 kg

DRUGS (1)
  1. BAMLANIVIMAB. [Suspect]
     Active Substance: BAMLANIVIMAB
     Indication: COVID-19
     Dates: start: 20210223, end: 20210223

REACTIONS (5)
  - Asthenia [None]
  - Dyspnoea [None]
  - Respiratory rate increased [None]
  - Pyrexia [None]
  - Sinus tachycardia [None]

NARRATIVE: CASE EVENT DATE: 20210223
